FAERS Safety Report 10610778 (Version 1)
Quarter: 2014Q4

REPORT INFORMATION
  Report Type: Report from Study
  Country: BR (occurrence: BR)
  Receive Date: 20141126
  Receipt Date: 20141126
  Transmission Date: 20150529
  Serious: Yes (Disabling, Other)
  Sender: FDA-Public Use
  Company Number: BR-ABBVIE-14K-020-1310259-00

PATIENT
  Sex: Male
  Weight: 79 kg

DRUGS (1)
  1. HUMIRA [Suspect]
     Active Substance: ADALIMUMAB
     Indication: RHEUMATOID ARTHRITIS
     Route: 058
     Dates: start: 2011, end: 2013

REACTIONS (17)
  - Limb asymmetry [Unknown]
  - Impaired work ability [Unknown]
  - Psoriatic arthropathy [Unknown]
  - Erythema [Not Recovered/Not Resolved]
  - Nail disorder [Unknown]
  - Spinal pain [Not Recovered/Not Resolved]
  - Spinal disorder [Unknown]
  - Dermatitis allergic [Not Recovered/Not Resolved]
  - Drug ineffective [Unknown]
  - Intervertebral disc degeneration [Unknown]
  - Nerve root compression [Unknown]
  - Musculoskeletal pain [Unknown]
  - Hypersensitivity [Not Recovered/Not Resolved]
  - Pallor [Unknown]
  - Pain in extremity [Unknown]
  - Pruritus allergic [Unknown]
  - Neuralgia [Unknown]

NARRATIVE: CASE EVENT DATE: 2012
